FAERS Safety Report 6064587 (Version 22)
Quarter: 2013Q3

REPORT INFORMATION
  Report Type: Spontaneous
  Country: US (occurrence: US)
  Receive Date: 20060614
  Receipt Date: 20130805
  Transmission Date: 20140515
  Serious: Yes (Death, Hospitalization, Other)
  Sender: FDA-Public Use
  Company Number: PHEH2006US07282

PATIENT
  Age: 68 Year
  Sex: Female

DRUGS (39)
  1. AREDIA [Suspect]
     Route: 042
     Dates: start: 200110, end: 20020326
  2. AREDIA [Suspect]
     Route: 042
  3. ZOMETA [Suspect]
     Indication: OSTEOPOROSIS
     Route: 042
     Dates: end: 200512
  4. ZOMETA [Suspect]
     Route: 042
     Dates: start: 200912
  5. BENZODIAZEPINES [Suspect]
  6. ASPIRIN ^BAYER^ [Concomitant]
  7. TAGAMET [Concomitant]
  8. PREMARIN                                /NEZ/ [Concomitant]
  9. LEVOXYL [Concomitant]
  10. ATENOLOL [Concomitant]
  11. VERAPAMIL [Concomitant]
  12. DECADRON [Concomitant]
  13. DALMANE [Concomitant]
  14. ATIVAN [Concomitant]
  15. LIPITOR                                 /NET/ [Concomitant]
  16. CLEOCIN [Concomitant]
  17. PRILOSEC [Concomitant]
  18. AMBIEN [Concomitant]
  19. NORCO [Concomitant]
  20. CALCITONIN [Concomitant]
  21. RESTASIS [Concomitant]
  22. SYSTANE (PROPYLENE GLYCOL/MACROGOL) [Concomitant]
  23. ALCOHOL [Concomitant]
  24. GABAPENTIN [Concomitant]
  25. OMEPRAZOLE [Concomitant]
  26. LIPITOR                                 /UNK/ [Concomitant]
  27. MACROBID [Concomitant]
  28. AMIODARONE [Concomitant]
  29. CLINDAMYCIN [Concomitant]
  30. LORAZEPAM [Concomitant]
  31. VALTREX [Concomitant]
  32. PREMARIN                                /NEZ/ [Concomitant]
  33. VELCADE [Concomitant]
  34. LYRICA [Concomitant]
  35. MESTINON [Concomitant]
  36. FLUDROCORTISONE [Concomitant]
  37. ZOFRAN [Concomitant]
  38. DEXAMETHASONE [Concomitant]
  39. OXYCODONE [Concomitant]

REACTIONS (122)
  - Ventricular hypokinesia [Unknown]
  - Nausea [Unknown]
  - Vomiting [Unknown]
  - Dysphagia [Unknown]
  - Hiatus hernia [Unknown]
  - Urinary tract infection [Unknown]
  - Hypotension [Unknown]
  - Dizziness [Unknown]
  - Asthenia [Unknown]
  - Supraventricular extrasystoles [Unknown]
  - Left ventricular hypertrophy [Unknown]
  - Palpitations [Unknown]
  - Ventricular extrasystoles [Unknown]
  - Large intestine polyp [Unknown]
  - Diverticulum [Unknown]
  - Road traffic accident [Unknown]
  - Spinal pain [Unknown]
  - Spinal compression fracture [Unknown]
  - Musculoskeletal pain [Unknown]
  - Cardiomyopathy [Unknown]
  - Ejection fraction decreased [Unknown]
  - Left atrial dilatation [Unknown]
  - Mitral valve incompetence [Unknown]
  - Cardiac failure congestive [Unknown]
  - Influenza like illness [Unknown]
  - Back pain [Unknown]
  - Constipation [Unknown]
  - Hypokalaemia [Unknown]
  - Insomnia [Unknown]
  - Bronchitis [Unknown]
  - Dehydration [Unknown]
  - Neuropathy peripheral [Unknown]
  - Pain in extremity [Unknown]
  - Supraventricular tachycardia [Unknown]
  - Joint dislocation [Unknown]
  - Eye infection [Unknown]
  - Ingrowing nail [Unknown]
  - Grief reaction [Unknown]
  - Blood pressure fluctuation [Unknown]
  - Rhonchi [Unknown]
  - Herpes zoster [Unknown]
  - Ear disorder [Unknown]
  - Dermatitis contact [Unknown]
  - Iron deficiency anaemia [Unknown]
  - Neuralgia [Unknown]
  - Arrhythmia supraventricular [Unknown]
  - Vertigo [Unknown]
  - Diarrhoea [Unknown]
  - Decreased appetite [Unknown]
  - Neutropenia [Unknown]
  - Palmar-plantar erythrodysaesthesia syndrome [Unknown]
  - Pericardial effusion [Unknown]
  - Rectal haemorrhage [Unknown]
  - Spinal osteoarthritis [Unknown]
  - White matter lesion [Unknown]
  - Gastrooesophageal reflux disease [Unknown]
  - Facial pain [Unknown]
  - Depression [Unknown]
  - Hypoaesthesia [Unknown]
  - Vaginal prolapse [Unknown]
  - Onychomycosis [Unknown]
  - Hyperkeratosis [Unknown]
  - Kyphoscoliosis [Unknown]
  - Neoplasm skin [Unknown]
  - Productive cough [Unknown]
  - Increased upper airway secretion [Unknown]
  - Blood glucose increased [Unknown]
  - Toothache [Unknown]
  - Arthritis [Unknown]
  - Glaucoma [Unknown]
  - Myocardial infarction [Unknown]
  - Osteolysis [Unknown]
  - Mass [Unknown]
  - Cachexia [Unknown]
  - Hypercholesterolaemia [Unknown]
  - Weight decreased [Unknown]
  - Dyspnoea [Unknown]
  - Renal cyst [Unknown]
  - Cardiomegaly [Unknown]
  - Bronchial wall thickening [Unknown]
  - Staphylococcal infection [Unknown]
  - Clavicle fracture [Recovering/Resolving]
  - Drug dependence [Unknown]
  - Candida infection [Unknown]
  - Plasma cell myeloma [Unknown]
  - Malignant neoplasm progression [Unknown]
  - Intervertebral disc protrusion [Unknown]
  - Lumbar spinal stenosis [Unknown]
  - Osteopenia [Unknown]
  - Coronary artery disease [Unknown]
  - Death [Fatal]
  - Anaemia of chronic disease [Unknown]
  - Blood urea increased [Recovering/Resolving]
  - Hypercalcaemia [Unknown]
  - Circulatory collapse [Unknown]
  - Renal failure acute [Unknown]
  - Lethargy [Unknown]
  - Blood creatinine increased [Recovering/Resolving]
  - Renal failure chronic [Unknown]
  - Mental status changes [Unknown]
  - Syncope [Unknown]
  - Chest pain [Unknown]
  - Tendonitis [Unknown]
  - Osteonecrosis of jaw [Unknown]
  - General physical health deterioration [Unknown]
  - Pain [Unknown]
  - Anxiety [Unknown]
  - Decreased interest [Unknown]
  - Bone disorder [Unknown]
  - Swelling [Unknown]
  - Pyrexia [Unknown]
  - Cellulitis [Unknown]
  - Osteomyelitis [Unknown]
  - Abscess [Unknown]
  - Confusional state [Recovering/Resolving]
  - Delirium [Unknown]
  - Hallucination [Unknown]
  - Cataract [Unknown]
  - Visual acuity reduced [Unknown]
  - Glare [Unknown]
  - Bursitis [Unknown]
  - Macrocytosis [Unknown]
